FAERS Safety Report 8779823 (Version 1)
Quarter: 2012Q4

REPORT INFORMATION
  Report Type: 
  Country: US (occurrence: US)
  Receive Date: 20120912
  Receipt Date: 20120912
  Transmission Date: 20130627
  Serious: No
  Sender: FDA-Public Use
  Company Number: US-ASTRAZENECA-2012SE60875

PATIENT
  Age: 58 Year
  Sex: Female
  Weight: 98 kg

DRUGS (5)
  1. ARIMIDEX [Suspect]
     Indication: BREAST CANCER
     Route: 048
  2. AMITRIPTYLINE [Concomitant]
  3. CELEXA [Concomitant]
  4. VITAMINE D [Concomitant]
  5. POTASSIUM CITRATE [Concomitant]
     Indication: NEPHROLITHIASIS

REACTIONS (3)
  - Nephrolithiasis [Unknown]
  - Blood cholesterol increased [Unknown]
  - Off label use [Unknown]
